FAERS Safety Report 8138648-3 (Version None)
Quarter: 2012Q1

REPORT INFORMATION
  Report Type: 
  Country: None (occurrence: None)
  Receive Date: 20120215
  Receipt Date: 20100111
  Transmission Date: 20120608
  Serious: Yes (Death)
  Sender: FDA-Public Use
  Company Number: PHHY2010AU093578

PATIENT
  Sex: Female

DRUGS (1)
  1. ZOLEDRONOC ACID [Suspect]
     Dosage: 5 MG, UNK
     Route: 042

REACTIONS (1)
  - DEATH [None]
